FAERS Safety Report 11555952 (Version 15)
Quarter: 2020Q4

REPORT INFORMATION
  Report Type: Spontaneous
  Country: US (occurrence: US)
  Receive Date: 20150925
  Receipt Date: 20201112
  Transmission Date: 20210113
  Serious: Yes (Other)
  Sender: FDA-Public Use
  Company Number: US-PFIZER INC-2015315632

PATIENT
  Age: 68 Year
  Sex: Male
  Weight: 92 kg

DRUGS (7)
  1. LYRICA [Suspect]
     Active Substance: PREGABALIN
     Indication: NEUROPATHY PERIPHERAL
     Dosage: 150 MG, 3X/DAY
     Route: 048
     Dates: start: 2008
  2. ROPINIROLE. [Concomitant]
     Active Substance: ROPINIROLE
     Indication: RESTLESS LEGS SYNDROME
     Dosage: UNK
  3. LYRICA [Suspect]
     Active Substance: PREGABALIN
     Indication: DIABETIC NEUROPATHY
     Dosage: UNK, DAILY (THREE OR FOUR TIMES A DAY)
     Route: 048
  4. LYRICA [Suspect]
     Active Substance: PREGABALIN
     Indication: PAIN IN EXTREMITY
     Dosage: 150 MG, 3X/DAY
     Route: 048
     Dates: start: 2010
  5. FUROSEMIDE. [Concomitant]
     Active Substance: FUROSEMIDE
     Indication: FLUID RETENTION
     Dosage: 80 MG, (MONDAY, WEDNESDAY AND FRIDAY ONE AND TUESDAY, THURSDAY AND SATURDAY TWO)
  6. CLOPIDOGREL [Concomitant]
     Active Substance: CLOPIDOGREL BISULFATE
     Indication: CARDIAC FAILURE
     Dosage: UNK
  7. IBUPROFEN. [Concomitant]
     Active Substance: IBUPROFEN
     Dosage: UNK

REACTIONS (7)
  - Macular degeneration [Not Recovered/Not Resolved]
  - Cerebrovascular accident [Unknown]
  - Blindness [Unknown]
  - Intentional product use issue [Unknown]
  - Pain in extremity [Unknown]
  - Insomnia [Unknown]
  - Weight increased [Unknown]

NARRATIVE: CASE EVENT DATE: 2012
